FAERS Safety Report 21044160 (Version 1)
Quarter: 2022Q3

REPORT INFORMATION
  Report Type: Spontaneous
  Country: SE (occurrence: SE)
  Receive Date: 20220705
  Receipt Date: 20220705
  Transmission Date: 20221027
  Serious: Yes (Death)
  Sender: FDA-Public Use
  Company Number: SE-JNJFOC-20220661165

PATIENT
  Sex: Male

DRUGS (1)
  1. RISPERDAL [Suspect]
     Active Substance: RISPERIDONE
     Indication: Product used for unknown indication
     Route: 065
     Dates: end: 201911

REACTIONS (8)
  - Dementia [Fatal]
  - Head injury [Unknown]
  - Eye infection [Unknown]
  - Rash [Unknown]
  - Urinary tract infection [Unknown]
  - Hypersomnia [Unknown]
  - Fall [Unknown]
  - Dizziness [Unknown]
